FAERS Safety Report 21210436 (Version 2)
Quarter: 2022Q3

REPORT INFORMATION
  Report Type: Report from Study
  Country: BR (occurrence: BR)
  Receive Date: 20220815
  Receipt Date: 20220921
  Transmission Date: 20221026
  Serious: Yes (Death, Life-Threatening, Hospitalization)
  Sender: FDA-Public Use
  Company Number: BR-JNJFOC-20220206514

PATIENT
  Age: 65 Year
  Sex: Female

DRUGS (39)
  1. CARFILZOMIB [Suspect]
     Active Substance: CARFILZOMIB
     Indication: Plasma cell myeloma
     Dosage: 20 MILLIGRAM/SQ. METER, QWK
     Route: 042
     Dates: start: 20220110, end: 20220110
  2. DARATUMUMAB [Suspect]
     Active Substance: DARATUMUMAB
     Indication: Plasma cell myeloma
     Dosage: 1800 MILLIGRAM, QWK
     Route: 058
     Dates: start: 20220110, end: 20220110
  3. DEXAMETHASONE [Concomitant]
     Active Substance: DEXAMETHASONE
     Indication: Plasma cell myeloma
     Dosage: 20 MILLIGRAM, QWK
     Route: 042
     Dates: start: 20220110, end: 20220110
  4. LOSARTAN [Concomitant]
     Active Substance: LOSARTAN
     Indication: Hypertension
     Dosage: 50 MILLIGRAM, QD
     Route: 048
     Dates: start: 20170301, end: 20220127
  5. ZOLEDRONIC ACID [Concomitant]
     Active Substance: ZOLEDRONIC ACID
     Indication: Prophylaxis
     Dosage: 4 MILLIGRAM, QMO
     Route: 065
     Dates: start: 20210301
  6. FUROSEMIDE [Concomitant]
     Active Substance: FUROSEMIDE
     Indication: Hypertension
     Dosage: 40 MILLIGRAM, QD
     Route: 048
     Dates: start: 20170301, end: 20220127
  7. INSULIN HUMAN [Concomitant]
     Active Substance: INSULIN HUMAN
     Indication: Type 2 diabetes mellitus
     Dosage: 20
     Route: 065
     Dates: start: 20110101
  8. INSULIN HUMAN [Concomitant]
     Active Substance: INSULIN HUMAN
     Dosage: 0.3
     Route: 065
     Dates: start: 20110101, end: 20110131
  9. INSULIN HUMAN [Concomitant]
     Active Substance: INSULIN HUMAN
     Dosage: 15
     Route: 058
     Dates: start: 20190101, end: 20220131
  10. BECLOMETHASONE DIPROPIONATE [Concomitant]
     Active Substance: BECLOMETHASONE DIPROPIONATE
     Indication: Influenza
     Dosage: 400 MICROGRAM
     Route: 055
     Dates: start: 20220111, end: 20220127
  11. BECLOMETHASONE DIPROPIONATE [Concomitant]
     Active Substance: BECLOMETHASONE DIPROPIONATE
     Indication: COVID-19
     Dosage: UNK
  12. ALBUTEROL [Concomitant]
     Active Substance: ALBUTEROL
     Indication: Influenza
     Dosage: 0.5 MILLIGRAM, BID
     Route: 055
     Dates: start: 20220111
  13. ALBUTEROL [Concomitant]
     Active Substance: ALBUTEROL
     Indication: Hyperkalaemia
     Dosage: 0.5 MILLIGRAM, QD
     Route: 055
     Dates: start: 20220104, end: 20220127
  14. ALBUTEROL [Concomitant]
     Active Substance: ALBUTEROL
     Indication: COVID-19
     Dosage: 0.5 MILLIGRAM, QD
     Route: 065
     Dates: start: 20220104, end: 20220127
  15. ALBUTEROL [Concomitant]
     Active Substance: ALBUTEROL
     Indication: Hyperuricaemia
     Dosage: 0.5 MILLILITER, TID
     Route: 055
     Dates: start: 20220127, end: 20220128
  16. LEVODROPROPIZINE [Concomitant]
     Active Substance: LEVODROPROPIZINE
     Indication: Influenza
     Dosage: 40 DROP, QD
     Route: 048
     Dates: start: 20220115, end: 20220126
  17. LEVODROPROPIZINE [Concomitant]
     Active Substance: LEVODROPROPIZINE
     Indication: COVID-19
     Dosage: 10 MILLILITER
     Route: 048
     Dates: start: 20220127, end: 20220128
  18. OMEPRAZOLE [Concomitant]
     Active Substance: OMEPRAZOLE
     Indication: Dyspepsia
     Dosage: 40 MILLIGRAM
     Route: 048
     Dates: start: 20150101, end: 20220128
  19. ALLOPURINOL [Concomitant]
     Active Substance: ALLOPURINOL
     Indication: Hyperuricaemia
     Dosage: 300 MILLIGRAM, QD
     Route: 048
     Dates: start: 20220130, end: 20220131
  20. ALLOPURINOL [Concomitant]
     Active Substance: ALLOPURINOL
     Dosage: 300 MILLIGRAM, QD
     Route: 048
     Dates: start: 20220127, end: 20220129
  21. SULFAMETHOXAZOLE AND TRIMETHOPRIM [Concomitant]
     Active Substance: SULFAMETHOXAZOLE\TRIMETHOPRIM
     Indication: Infection prophylaxis
     Dosage: 800/160
     Route: 048
     Dates: start: 20220127, end: 20220131
  22. PANTOPRAZOLE [Concomitant]
     Active Substance: PANTOPRAZOLE
     Indication: Prophylaxis against gastrointestinal ulcer
     Dosage: 40 MILLIGRAM, QD
     Route: 042
     Dates: start: 20220128, end: 20220131
  23. ONDANSETRON HYDROCHLORIDE [Concomitant]
     Active Substance: ONDANSETRON HYDROCHLORIDE
     Indication: Prophylaxis of nausea and vomiting
     Dosage: 8 MILLIGRAM
     Route: 042
     Dates: start: 20220129, end: 20220129
  24. CLONIDINE [Concomitant]
     Active Substance: CLONIDINE
     Indication: Cardiovascular event prophylaxis
     Dosage: 0.1 MILLIGRAM
     Route: 048
     Dates: start: 20220129, end: 20220129
  25. AMLODIPINE [Concomitant]
     Active Substance: AMLODIPINE BESYLATE
     Indication: Hypertension
     Dosage: 10 MILLIGRAM, QD
     Route: 048
     Dates: start: 20220129, end: 20220129
  26. AMLODIPINE [Concomitant]
     Active Substance: AMLODIPINE BESYLATE
     Dosage: 5 MILLIGRAM, QD
     Route: 048
     Dates: start: 20220130, end: 20220131
  27. DIPYRONE [Concomitant]
     Active Substance: DIPYRONE
     Indication: Pain prophylaxis
     Dosage: 1000 MILLIGRAM
     Route: 042
     Dates: start: 20220131, end: 20220131
  28. SODIUM CHLORIDE [Concomitant]
     Active Substance: SODIUM CHLORIDE
     Indication: Prophylaxis against dehydration
     Dosage: 2500 MILLILITER, QD
     Route: 042
     Dates: start: 20220127, end: 20220129
  29. SODIUM CHLORIDE [Concomitant]
     Active Substance: SODIUM CHLORIDE
     Dosage: 500 MILLILITER, QD
     Route: 058
     Dates: start: 20220201, end: 20220201
  30. HEPARIN [Concomitant]
     Active Substance: HEPARIN SODIUM
     Indication: Thrombosis prophylaxis
     Dosage: 5000
     Route: 058
     Dates: start: 20220128, end: 20220131
  31. CODEINE [Concomitant]
     Active Substance: CODEINE
     Indication: Pain prophylaxis
     Dosage: 30 MILLIGRAM, QD
     Route: 048
     Dates: start: 20220128, end: 20220131
  32. SODIUM BICARBONATE [Concomitant]
     Active Substance: SODIUM BICARBONATE
     Indication: Prophylaxis
     Dosage: 150 MILLILITER
     Route: 042
     Dates: start: 20220129, end: 20220131
  33. MORPHINE [Concomitant]
     Active Substance: MORPHINE
     Indication: Pain prophylaxis
     Dosage: 10 MILLIGRAM
     Route: 042
     Dates: start: 20220131, end: 20220131
  34. MORPHINE [Concomitant]
     Active Substance: MORPHINE
     Dosage: 100 MILLIGRAM
     Route: 042
     Dates: start: 20220201, end: 20220201
  35. CALCIUM GLUCONATE [Concomitant]
     Active Substance: CALCIUM GLUCONATE
     Indication: Prophylaxis
     Dosage: 10 MILLILITER, BID
     Route: 042
     Dates: start: 20220131, end: 20220131
  36. PROMETHAZINE [Concomitant]
     Active Substance: PROMETHAZINE HYDROCHLORIDE
     Indication: Prophylaxis
     Dosage: 25 MILLIGRAM
     Route: 030
     Dates: start: 20220131, end: 20220131
  37. ATROPINE [Concomitant]
     Active Substance: ATROPINE
     Indication: Prophylaxis
     Dosage: 1 GTT DROPS, BID
     Route: 048
     Dates: start: 20220201, end: 20220201
  38. NALOXONE [Concomitant]
     Active Substance: NALOXONE
     Indication: Prophylaxis
     Dosage: 0.4 MILLIGRAM
     Route: 042
     Dates: start: 20220202, end: 20220202
  39. HALOPERIDOL [Concomitant]
     Active Substance: HALOPERIDOL
     Indication: Prophylaxis
     Dosage: 10 MILLIGRAM
     Route: 030
     Dates: start: 20220202, end: 20220202

REACTIONS (2)
  - Anaemia [Recovered/Resolved]
  - COVID-19 [Fatal]

NARRATIVE: CASE EVENT DATE: 20220127
